FAERS Safety Report 21200104 (Version 1)
Quarter: 2022Q3

REPORT INFORMATION
  Report Type: Spontaneous
  Country: US (occurrence: US)
  Receive Date: 20220811
  Receipt Date: 20220811
  Transmission Date: 20221027
  Serious: Yes (Other)
  Sender: FDA-Public Use
  Company Number: US-NOVARTISPH-NVSC2022US181606

PATIENT

DRUGS (4)
  1. DOCETAXEL [Suspect]
     Active Substance: DOCETAXEL
     Indication: Product used for unknown indication
     Dosage: UNK
     Route: 065
     Dates: start: 20160901, end: 20161219
  2. DOCETAXEL [Suspect]
     Active Substance: DOCETAXEL
     Dosage: UNK
     Route: 065
     Dates: start: 20191114, end: 20200227
  3. TAXOTERE [Suspect]
     Active Substance: DOCETAXEL
     Indication: Product used for unknown indication
     Dosage: UNK
     Route: 065
     Dates: start: 20160901, end: 20161219
  4. TAXOTERE [Suspect]
     Active Substance: DOCETAXEL
     Dosage: UNK
     Route: 065
     Dates: start: 20191114, end: 20200227

REACTIONS (3)
  - Dacryostenosis acquired [Unknown]
  - Lacrimation increased [Unknown]
  - Injury [Unknown]
